FAERS Safety Report 15428465 (Version 1)
Quarter: 2018Q3

REPORT INFORMATION
  Report Type: Spontaneous
  Country: US (occurrence: US)
  Receive Date: 20180917
  Receipt Date: 20180917
  Transmission Date: 20181010
  Serious: Yes (Hospitalization)
  Sender: FDA-Public Use
  Company Number: None

PATIENT
  Age: 64 Year
  Sex: Female

DRUGS (22)
  1. IBRANCE [Suspect]
     Active Substance: PALBOCICLIB
     Indication: BREAST CANCER
     Route: 048
     Dates: start: 201809
  2. POLYETH GLYC POW [Concomitant]
  3. FENTANYL DS [Concomitant]
  4. OMEPRAZOLE. [Concomitant]
     Active Substance: OMEPRAZOLE
  5. DICLOFENAC [Concomitant]
     Active Substance: DICLOFENAC
  6. PROCHLORPER [Concomitant]
  7. ANASTROZOLE. [Concomitant]
     Active Substance: ANASTROZOLE
  8. VENLAFAXINE [Concomitant]
     Active Substance: VENLAFAXINE HYDROCHLORIDE
  9. CA CITRATE [Concomitant]
  10. EFFEXOR [Concomitant]
     Active Substance: VENLAFAXINE HYDROCHLORIDE
  11. SIMVASTATIN. [Concomitant]
     Active Substance: SIMVASTATIN
  12. BISACODYL. [Concomitant]
     Active Substance: BISACODYL
  13. FISH OIL [Concomitant]
     Active Substance: FISH OIL
  14. BACLOFEN. [Concomitant]
     Active Substance: BACLOFEN
  15. SENNA?S [Concomitant]
     Active Substance: DOCUSATE SODIUM\SENNOSIDES
  16. HYDROCHLOROT [Concomitant]
     Active Substance: HYDROCHLOROTHIAZIDE
  17. TRAZODONE [Concomitant]
     Active Substance: TRAZODONE HYDROCHLORIDE
  18. LOSARTAN POT [Concomitant]
     Active Substance: LOSARTAN POTASSIUM
  19. ONDANSETRON [Concomitant]
     Active Substance: ONDANSETRON
  20. DEXAMETHASON [Concomitant]
     Active Substance: DEXAMETHASONE
  21. MULTIVITAMIN [Concomitant]
     Active Substance: VITAMINS
  22. LETROZOLE. [Concomitant]
     Active Substance: LETROZOLE

REACTIONS (1)
  - Femur fracture [None]

NARRATIVE: CASE EVENT DATE: 20180909
